FAERS Safety Report 25082646 (Version 1)
Quarter: 2025Q1

REPORT INFORMATION
  Report Type: Spontaneous
  Country: US (occurrence: US)
  Receive Date: 20250317
  Receipt Date: 20250317
  Transmission Date: 20250409
  Serious: No
  Sender: ITALFARMACO SPA
  Company Number: US-ITALFARMACO SPA-2173028

PATIENT
  Age: 15 Year
  Sex: Male

DRUGS (3)
  1. DUVYZAT [Suspect]
     Active Substance: GIVINOSTAT
     Dates: start: 20240808
  2. VILTEPSO [Concomitant]
     Active Substance: VILTOLARSEN
  3. TESTOSTERONE [Suspect]
     Active Substance: TESTOSTERONE
     Dates: start: 20250125

REACTIONS (4)
  - Myalgia [Unknown]
  - Erythema [Unknown]
  - Swelling [Unknown]
  - Inflammation [Unknown]

NARRATIVE: CASE EVENT DATE: 20250126
